FAERS Safety Report 10363416 (Version 1)
Quarter: 2014Q1

REPORT INFORMATION
  Report Type: Spontaneous
  Country: US (occurrence: None)
  Receive Date: 20140306
  Receipt Date: 20140306
  Transmission Date: 20141002
  Serious: Yes (Hospitalization)
  Sender: FDA-Public Use
  Company Number: 163-21880-13061820

PATIENT
  Age: 66 Year
  Sex: Male
  Weight: 83.9 kg

DRUGS (15)
  1. REVLIMID (LENALIDOMIDE) (25 MILLIGRAM, CAPSULES) [Suspect]
     Indication: PLASMA CELL MYELOMA
     Route: 048
     Dates: start: 200811
  2. CYMBALTA [Concomitant]
  3. CALCITRIOL (CAPSULES) [Concomitant]
  4. AMLODIPINE BESYLATE (TABLETS) [Concomitant]
  5. VALACYCLOVIR HCL (VALACICLOVIR HYDROCHLORIDE) (TABLETS) [Concomitant]
  6. DEXAMETHASONE (TABLETS) [Concomitant]
  7. LYRICA (PREGABALIN) (CAPSULES) [Concomitant]
  8. PROCHLORPERAZINE (TABLETS) [Concomitant]
  9. TOPROL XL (METOPROLOL SUCCINATE) (TABLETS) [Concomitant]
  10. NEXIUM (ESOMEPRAZOLE) (CAPSULES) [Concomitant]
  11. LUNESTA [Concomitant]
  12. OXYCONTIN (OXYCODONE HYDROCHLORIDE) (TABLETS) [Concomitant]
  13. RENAGEL (SEVELAMER HYDROCHLORIDE) (TABLETS) [Concomitant]
  14. VELCADE (BORTEZOMIB) [Concomitant]
  15. ASPIRINE (ACETYLSALICYLIC ACID) (CHEWABLE TABLET) [Concomitant]

REACTIONS (1)
  - Pneumonia [None]
